FAERS Safety Report 10275806 (Version 1)
Quarter: 2014Q3

REPORT INFORMATION
  Report Type: Spontaneous
  Country: SE (occurrence: SE)
  Receive Date: 20140703
  Receipt Date: 20140703
  Transmission Date: 20150326
  Serious: Yes (Hospitalization)
  Sender: FDA-Public Use
  Company Number: PHHY2014SE080803

PATIENT
  Age: 15 Year
  Sex: Female

DRUGS (4)
  1. SERTRALINE [Suspect]
     Active Substance: SERTRALINE HYDROCHLORIDE
     Dosage: 700 MG, WEEKLY
     Dates: start: 20140530, end: 20140530
  2. TIKACILLIN [Suspect]
     Active Substance: PENICILLIN V POTASSIUM
     Dosage: 16 G, WEEKLY
     Dates: start: 20140530, end: 20140530
  3. RITALIN [Suspect]
     Active Substance: METHYLPHENIDATE HYDROCHLORIDE
     Dosage: 420 MG, WEEKLY
     Dates: start: 20140530, end: 20140530
  4. ATARAX [Suspect]
     Active Substance: HYDROXYZINE\HYDROXYZINE HYDROCHLORIDE
     Dosage: 700 MG, WEEKLY
     Dates: start: 20140530, end: 20140530

REACTIONS (2)
  - Toxicity to various agents [Unknown]
  - Intentional self-injury [Unknown]

NARRATIVE: CASE EVENT DATE: 20140530
